FAERS Safety Report 7340222-3 (Version None)
Quarter: 2011Q1

REPORT INFORMATION
  Report Type: 
  Country: None (occurrence: None)
  Receive Date: 20110309
  Receipt Date: 20110303
  Transmission Date: 20110831
  Serious: Yes (Other)
  Sender: FDA-Public Use
  Company Number: BR-AMGEN-BRASP2011010553

PATIENT
  Age: 46 Year
  Sex: Male
  Weight: 91 kg

DRUGS (5)
  1. METHOTREXATE [Concomitant]
     Dosage: UNK
     Dates: start: 20090101, end: 20110207
  2. FOLIC ACID [Concomitant]
     Dosage: UNK
     Dates: start: 20090101, end: 20110207
  3. ENBREL [Suspect]
     Dosage: UNK
     Dates: start: 20110222
  4. ENBREL [Suspect]
     Indication: PSORIATIC ARTHROPATHY
     Dosage: UNK
     Route: 058
     Dates: start: 20090101, end: 20090101
  5. ENBREL [Suspect]
     Dosage: 25 MG, QWK
     Dates: end: 20110207

REACTIONS (6)
  - MOVEMENT DISORDER [None]
  - ARTHROPATHY [None]
  - JOINT SWELLING [None]
  - PSORIATIC ARTHROPATHY [None]
  - FOOT DEFORMITY [None]
  - VIRAL INFECTION [None]
